FAERS Safety Report 20345343 (Version 1)
Quarter: 2022Q1

REPORT INFORMATION
  Report Type: Report from Study
  Country: FR (occurrence: FR)
  Receive Date: 20220118
  Receipt Date: 20220118
  Transmission Date: 20220423
  Serious: Yes (Death)
  Sender: FDA-Public Use
  Company Number: FR-MYLANLABS-2022M1002828

PATIENT
  Age: 65 Year

DRUGS (2)
  1. EXEMESTANE [Suspect]
     Active Substance: EXEMESTANE
     Indication: Neoplasm malignant
     Dosage: UNK
  2. EVEROLIMUS [Suspect]
     Active Substance: EVEROLIMUS
     Indication: Neoplasm malignant
     Dosage: UNK

REACTIONS (2)
  - Drug ineffective [Fatal]
  - Disease progression [Unknown]
